FAERS Safety Report 7493443-3 (Version None)
Quarter: 2011Q2

REPORT INFORMATION
  Report Type: 
  Country: None (occurrence: None)
  Receive Date: 20110520
  Receipt Date: 20110511
  Transmission Date: 20111010
  Serious: Yes (Hospitalization)
  Sender: FDA-Public Use
  Company Number: US-B.I. PHARMACEUTICALS,INC./RIDGEFIELD-2011-BP-06920BP

PATIENT
  Sex: Female

DRUGS (10)
  1. PRADAXA [Suspect]
     Indication: ATRIAL FIBRILLATION
     Dosage: 300 MG
     Route: 048
     Dates: start: 20110101, end: 20110406
  2. METOPROLOL TARTRATE [Concomitant]
     Indication: HYPERTENSION
  3. LOSARTAN POTASSIUM [Concomitant]
     Indication: ATRIAL FIBRILLATION
     Route: 048
  4. METOPROLOL TARTRATE [Concomitant]
     Indication: ATRIAL FIBRILLATION
     Route: 048
  5. KLOR-CON [Concomitant]
     Indication: SUPPLEMENTATION THERAPY
  6. HUMULIN N [Concomitant]
     Indication: DIABETES MELLITUS
  7. COZAAR [Concomitant]
     Indication: HYPERTENSION
     Route: 048
  8. FERROUS SULFATE TAB [Concomitant]
     Indication: ANAEMIA
     Route: 048
  9. LASIX [Concomitant]
     Indication: CARDIAC FAILURE CONGESTIVE
  10. SYNTHROID [Concomitant]
     Indication: HYPOTHYROIDISM
     Route: 048

REACTIONS (2)
  - OEDEMA PERIPHERAL [None]
  - HAEMATOCHEZIA [None]
